FAERS Safety Report 8804810 (Version 3)
Quarter: 2012Q4

REPORT INFORMATION
  Report Type: Report from Study
  Country: IE (occurrence: IE)
  Receive Date: 20120924
  Receipt Date: 20121024
  Transmission Date: 20130627
  Serious: Yes (Other)
  Sender: FDA-Public Use
  Company Number: IE-AMGEN-IRLNI2012059548

PATIENT
  Age: 0 Year
  Sex: Female

DRUGS (6)
  1. DARBEPOETIN ALFA [Suspect]
     Dosage: 40 mug, UNK
     Route: 064
     Dates: end: 20090608
  2. IMURAN [Concomitant]
     Dosage: 75 mg, qd
     Route: 064
  3. PROGRAF [Concomitant]
     Dosage: UNK UNK, bid
     Route: 064
  4. FOLIC ACID [Concomitant]
     Dosage: 5 mg, qd
     Route: 064
  5. PREGNACARE [Concomitant]
     Dosage: UNK UNK, qd
     Route: 064
  6. PREDNISOLONE [Concomitant]
     Dosage: 5 mg, qd
     Route: 064

REACTIONS (2)
  - Premature baby [Unknown]
  - Kidney duplex [Unknown]
